FAERS Safety Report 6782932-2 (Version None)
Quarter: 2010Q2

REPORT INFORMATION
  Report Type: 
  Country: None (occurrence: None)
  Receive Date: 20100622
  Receipt Date: 20100615
  Transmission Date: 20101027
  Serious: Yes (Other)
  Sender: FDA-Public Use
  Company Number: US-ASTRAZENECA-2009UW11113

PATIENT
  Age: 20745 Day
  Sex: Male
  Weight: 105.7 kg

DRUGS (14)
  1. SEROQUEL [Suspect]
     Dosage: 1QAM AND 2 QHS
     Route: 048
     Dates: start: 20040330
  2. METFORMIN HCL [Concomitant]
     Dates: start: 20071001
  3. AVANDIA [Concomitant]
     Dates: start: 20071001
  4. HCTZ [Concomitant]
     Dates: start: 20071001
  5. VYTORIN [Concomitant]
     Dates: start: 20071001
  6. ASPIRIN [Concomitant]
     Dates: start: 20071001
  7. DEPAKOTE ER [Concomitant]
     Dosage: THREE/ THREE QHS
     Dates: start: 20040301
  8. HYDROXYZINE [Concomitant]
     Dates: start: 20040301
  9. LIPITOR [Concomitant]
     Dates: start: 20040301
  10. ALTACE [Concomitant]
     Dates: start: 20040301
  11. PAXIL CR [Concomitant]
     Dates: start: 20040301
  12. DILANTIN [Concomitant]
     Dosage: 5 QHS
     Route: 048
     Dates: start: 20040301
  13. GEMFIBROZIL [Concomitant]
     Dates: start: 20040301
  14. PREVACID [Concomitant]
     Dates: start: 20040301

REACTIONS (3)
  - DIABETES MELLITUS [None]
  - DIABETIC NEUROPATHY [None]
  - TYPE 2 DIABETES MELLITUS [None]
